FAERS Safety Report 24986592 (Version 1)
Quarter: 2025Q1

REPORT INFORMATION
  Report Type: Report from Study
  Country: QA (occurrence: QA)
  Receive Date: 20250219
  Receipt Date: 20250219
  Transmission Date: 20250409
  Serious: Yes (Other)
  Sender: JOHNSON AND JOHNSON
  Company Number: QA-JNJFOC-20250233737

PATIENT
  Age: 15 Year
  Sex: Male

DRUGS (1)
  1. REMICADE [Suspect]
     Active Substance: INFLIXIMAB
     Indication: Crohn^s disease
     Route: 041

REACTIONS (3)
  - Crohn^s disease [Not Recovered/Not Resolved]
  - Drug specific antibody [Unknown]
  - Treatment failure [Unknown]

NARRATIVE: CASE EVENT DATE: 20250101
